FAERS Safety Report 5468112-1 (Version None)
Quarter: 2007Q3

REPORT INFORMATION
  Report Type: 
  Country: None (occurrence: None)
  Receive Date: 20070820
  Receipt Date: 20070501
  Transmission Date: 20080115
  Serious: No
  Sender: FDA-Public Use
  Company Number: WAES 0703USA01324

PATIENT
  Age: 52 Year
  Sex: Female
  Weight: 104.3273 kg

DRUGS (6)
  1. JANUVIA [Suspect]
     Indication: DIABETES MELLITUS
     Dosage: 100 MG/DAILY/PO
     Route: 048
     Dates: start: 20070206, end: 20070215
  2. MIRAPEX [Concomitant]
  3. ULTRAM [Concomitant]
  4. XENICAL [Concomitant]
  5. LEVOTHYROXINE SODIUM [Concomitant]
  6. PHENTERMINE [Concomitant]

REACTIONS (2)
  - BREAST ENLARGEMENT [None]
  - BREAST TENDERNESS [None]
